FAERS Safety Report 4548934-1 (Version None)
Quarter: 2004Q4

REPORT INFORMATION
  Report Type: 
  Country: None (occurrence: None)
  Receive Date: 20041227
  Receipt Date: 20040903
  Transmission Date: 20050328
  Serious: No
  Sender: FDA-Public Use
  Company Number: 04P-163-0272427-00

PATIENT
  Age: 71 Year
  Sex: Female
  Weight: 108.8633 kg

DRUGS (7)
  1. HUMIRA [Suspect]
     Indication: RHEUMATOID ARTHRITIS
     Dosage: 40 MG, 1 IN 2 WK, SUBCUTANEOUS
     Route: 058
     Dates: start: 20040701, end: 20040801
  2. DYAZIDE [Concomitant]
  3. POTASSIUM [Concomitant]
  4. METOCLOPRAMIDE [Concomitant]
  5. IBUPROFEN [Concomitant]
  6. ACETAMINOPHEN W/ CODEINE [Concomitant]
  7. SIMVASTATIN [Concomitant]

REACTIONS (1)
  - DRUG INEFFECTIVE [None]
